FAERS Safety Report 16976592 (Version 2)
Quarter: 2019Q4

REPORT INFORMATION
  Report Type: Other
  Country: US (occurrence: US)
  Receive Date: 20191030
  Receipt Date: 20191111
  Transmission Date: 20200122
  Serious: Yes (Other)
  Sender: FDA-Public Use
  Company Number: US-COOPERSURGICAL, INC.-US-2019CPS003346

PATIENT
  Age: 35 Year
  Sex: Female
  Weight: 72.3 kg

DRUGS (1)
  1. PARAGARD T 380A [Suspect]
     Active Substance: COPPER
     Indication: CONTRACEPTION
     Dosage: UNK
     Route: 015
     Dates: start: 20190327, end: 20190918

REACTIONS (5)
  - Complication of device removal [Recovered/Resolved]
  - Device breakage [Recovered/Resolved]
  - Device expulsion [Recovered/Resolved]
  - Foreign body in reproductive tract [Recovered/Resolved]
  - Metrorrhagia [Unknown]

NARRATIVE: CASE EVENT DATE: 201907
